FAERS Safety Report 20309123 (Version 1)
Quarter: 2022Q1

REPORT INFORMATION
  Report Type: Spontaneous
  Country: US (occurrence: None)
  Receive Date: 20220106
  Receipt Date: 20220106
  Transmission Date: 20220423
  Serious: No
  Sender: FDA-Public Use
  Company Number: None

PATIENT
  Age: 64 Year
  Sex: Male

DRUGS (1)
  1. SEROSTIM [Suspect]
     Active Substance: SOMATROPIN
     Indication: Lipodystrophy acquired
     Dosage: 6MG DAILY SC?
     Route: 058
     Dates: start: 202010

REACTIONS (2)
  - Cardiac disorder [None]
  - Therapy interrupted [None]

NARRATIVE: CASE EVENT DATE: 20210728
